FAERS Safety Report 5914815-1 (Version None)
Quarter: 2008Q4

REPORT INFORMATION
  Report Type: 
  Country: None (occurrence: None)
  Receive Date: 20081010
  Receipt Date: 20080929
  Transmission Date: 20090506
  Serious: Yes (Hospitalization)
  Sender: FDA-Public Use
  Company Number: DE-ELI_LILLY_AND_COMPANY-DE200809006555

PATIENT
  Sex: Female

DRUGS (1)
  1. FORTEO [Suspect]
     Indication: OSTEOPOROSIS
     Dosage: UNK, UNKNOWN
     Route: 058
     Dates: start: 20080925, end: 20080101

REACTIONS (6)
  - DIPLOPIA [None]
  - HEADACHE [None]
  - HOSPITALISATION [None]
  - MUSCLE SPASMS [None]
  - NAUSEA [None]
  - PAIN [None]
